FAERS Safety Report 4999048-8 (Version None)
Quarter: 2006Q1

REPORT INFORMATION
  Report Type: 
  Country: None (occurrence: None)
  Receive Date: 20060315
  Receipt Date: 20060206
  Transmission Date: 20060701
  Serious: Yes (Other)
  Sender: FDA-Public Use
  Company Number: 435408

PATIENT
  Age: 76 Year
  Sex: Female

DRUGS (2)
  1. BONIVA [Suspect]
     Indication: OSTEOPOROSIS
     Dosage: 150 MG  1 PER MONTH  ORAL
     Route: 048
     Dates: start: 20051027
  2. FOSAMAX [Concomitant]

REACTIONS (4)
  - HEADACHE [None]
  - NECK PAIN [None]
  - SHOULDER PAIN [None]
  - TOOTH INFECTION [None]
